FAERS Safety Report 9250913 (Version 2)
Quarter: 2013Q3

REPORT INFORMATION
  Report Type: Spontaneous
  Country: US (occurrence: US)
  Receive Date: 20130424
  Receipt Date: 20130719
  Transmission Date: 20140515
  Serious: Yes (Other)
  Sender: FDA-Public Use
  Company Number: US-BAYER-2013-051109

PATIENT
  Sex: Female

DRUGS (2)
  1. YAZ [Suspect]
     Indication: ACNE
  2. YASMIN [Suspect]
     Indication: ACNE
     Dosage: UNK

REACTIONS (7)
  - Gallbladder non-functioning [None]
  - Cerebrovascular accident [None]
  - Coagulopathy [None]
  - Hysterectomy [None]
  - Injury [None]
  - Pain [None]
  - Pain [None]
